FAERS Safety Report 5010258-6 (Version None)
Quarter: 2006Q2

REPORT INFORMATION
  Report Type: 
  Country: None (occurrence: None)
  Receive Date: 20060404
  Receipt Date: 20051201
  Transmission Date: 20061013
  Serious: No
  Sender: FDA-Public Use
  Company Number: US200512000298

PATIENT
  Age: 62 Year
  Sex: Male

DRUGS (9)
  1. CYMBALTA [Suspect]
     Indication: DEPRESSION
     Dosage: 60 MG, DAILY (1/D), ORAL
     Route: 048
     Dates: start: 20051101
  2. TRAZODONE HCL [Concomitant]
  3. ASA ASPIRIN (ACETYLSALICYLIC ACID) [Concomitant]
  4. LIPITOR [Concomitant]
  5. GLUCOSAMINE (GLUCOSAMINE) [Concomitant]
  6. MULTIVITAMINS, PLAIN [Concomitant]
  7. CALCIUM WITH VITAMIN D (CALCIUM PHOSPHATE, CALCIUM SODIUM LACTATE, ERG [Concomitant]
  8. FISH OIL (FISH OIL) [Concomitant]
  9. MOBIC [Concomitant]

REACTIONS (6)
  - CHILLS [None]
  - CONSTIPATION [None]
  - DECREASED APPETITE [None]
  - DRY MOUTH [None]
  - NAUSEA [None]
  - WEIGHT DECREASED [None]
